FAERS Safety Report 6307114-X (Version None)
Quarter: 2009Q3

REPORT INFORMATION
  Report Type: 
  Country: None (occurrence: None)
  Receive Date: 20090812
  Receipt Date: 20090811
  Transmission Date: 20100115
  Serious: Yes (Death)
  Sender: FDA-Public Use
  Company Number: US-ASTRAZENECA-2009UW19415

PATIENT
  Age: 18966 Day
  Sex: Male
  Weight: 99.8 kg

DRUGS (10)
  1. SYMBICORT [Suspect]
     Indication: ASTHMA
     Dosage: 160 / 4.5 UG, 2 PUFFS TWICE DAILY
     Route: 055
     Dates: start: 20080915, end: 20090630
  2. SYMBICORT [Suspect]
     Indication: CHRONIC OBSTRUCTIVE PULMONARY DISEASE
     Dosage: 160 / 4.5 UG, 2 PUFFS TWICE DAILY
     Route: 055
     Dates: start: 20080915, end: 20090630
  3. ALVESCO [Suspect]
     Indication: ASTHMA
     Route: 055
     Dates: start: 20090403, end: 20090630
  4. THEOPHYLLINE [Suspect]
     Indication: ASTHMA
     Route: 048
     Dates: start: 20090113, end: 20090630
  5. MAXAIR [Concomitant]
  6. ALBUTEROL [Concomitant]
     Indication: ASTHMA
     Dosage: 0.83% EVERY 4-6 HOURS PRN
     Route: 055
  7. ACCOLATE [Concomitant]
     Indication: ASTHMA
     Route: 048
     Dates: start: 20090404, end: 20090630
  8. LIPITOR [Concomitant]
     Indication: HYPERCHOLESTEROLAEMIA
     Route: 048
  9. XOLAIR [Concomitant]
     Indication: ASTHMA
     Route: 058
     Dates: start: 20050725, end: 20090611
  10. IPRATROPIUM BROMIDE [Concomitant]
     Indication: ASTHMA
     Dosage: 0.2% SOLUTION EVERY 4-6 HOURS AS NEEDED

REACTIONS (1)
  - SUDDEN CARDIAC DEATH [None]
